FAERS Safety Report 25615224 (Version 1)
Quarter: 2025Q3

REPORT INFORMATION
  Report Type: Report from Study
  Country: CO (occurrence: CO)
  Receive Date: 20250729
  Receipt Date: 20250729
  Transmission Date: 20251020
  Serious: Yes (Hospitalization, Other)
  Sender: NOVO NORDISK
  Company Number: CO-NOVOPROD-1483512

PATIENT
  Age: 45 Year
  Sex: Female
  Weight: 112 kg

DRUGS (2)
  1. SAXENDA [Suspect]
     Active Substance: LIRAGLUTIDE
     Route: 058
  2. SAXENDA [Suspect]
     Active Substance: LIRAGLUTIDE
     Indication: Obesity
     Dosage: 1.2 MG, QD
     Route: 058
     Dates: start: 20250215

REACTIONS (2)
  - Bile duct stone [Unknown]
  - Cholelithiasis [Unknown]
